FAERS Safety Report 17734276 (Version 2)
Quarter: 2020Q2

REPORT INFORMATION
  Report Type: Spontaneous
  Country: FI (occurrence: FI)
  Receive Date: 20200501
  Receipt Date: 20200506
  Transmission Date: 20200714
  Serious: Yes (Life-Threatening, Hospitalization)
  Sender: FDA-Public Use
  Company Number: FI-PFIZER INC-2020174580

PATIENT
  Age: 83 Year
  Sex: Female

DRUGS (14)
  1. MELATONIN ORION [Concomitant]
     Active Substance: MELATONIN
     Dosage: 3 MG, 1X/DAY
  2. PANADOL FORTE [PARACETAMOL] [Concomitant]
     Dosage: UNK, AS NEEDED (AT 1 G, MAX THREE TABLETS IF NEEDED)
  3. KALEORID [Concomitant]
     Active Substance: POTASSIUM CHLORIDE
     Dosage: 1 G, 1X/DAY
  4. HYDREX [HYDROCHLOROTHIAZIDE] [Concomitant]
     Dosage: 25 MG, 1X/DAY
  5. FOLIC ACID. [Concomitant]
     Active Substance: FOLIC ACID
     Dosage: 1 DF (5 MG, 1 TABLET 6-24 H AFTER TREXAN)
  6. CALCICHEW D3 FORTE [Concomitant]
     Active Substance: CALCIUM\CHOLECALCIFEROL
     Dosage: 2 DF, 1X/DAY, 2X1/DAILY
  7. BISOPROLOL ORION [Concomitant]
     Active Substance: BISOPROLOL
     Dosage: 2.5 MG, 1X/DAY
  8. DIFORMIN [Concomitant]
     Active Substance: METFORMIN HYDROCHLORIDE
     Dosage: 1000 MG, 2X/DAY (1 IN 12HR) (500 MG, 2X2/DAILY)
  9. ASASANTIN RETARD [Concomitant]
     Active Substance: ASPIRIN\DIPYRIDAMOLE
     Dosage: 1 DF, 2X/DAY (200/25 MG, 1X2/DAILY)
  10. MIRTAZAPIN ORION [Concomitant]
     Active Substance: MIRTAZAPINE
     Dosage: 7.5 MG, 1X/DAY (15 MG, 0,5X1/DAILY)
  11. TREXAN [METHOTREXATE] [Suspect]
     Active Substance: METHOTREXATE
     Indication: POLYMYALGIA RHEUMATICA
     Dosage: 12.5 MG, WEEKLY (5 TABLETS/ONCE WEEKLY (12.5 MG,1 IN 1 WK))
     Route: 048
     Dates: start: 201503, end: 20200405
  12. JANUVIA [Concomitant]
     Active Substance: SITAGLIPTIN PHOSPHATE
     Dosage: 50 MG, 1X/DAY
  13. LOSATRIX [Concomitant]
     Active Substance: LOSARTAN POTASSIUM
     Dosage: 50 MG, 1X/DAY
  14. SOMAC [Concomitant]
     Active Substance: PANTOPRAZOLE SODIUM
     Dosage: 40 MG, 1X/DAY

REACTIONS (5)
  - Agranulocytosis [Recovered/Resolved]
  - Thrombocytopenia [Recovered/Resolved]
  - Anaemia [Recovered/Resolved]
  - Pancytopenia [Recovered/Resolved]
  - Myocardial infarction [Recovered/Resolved]

NARRATIVE: CASE EVENT DATE: 20200405
